FAERS Safety Report 7215794-X (Version None)
Quarter: 2011Q1

REPORT INFORMATION
  Report Type: 
  Country: None (occurrence: None)
  Receive Date: 20110107
  Receipt Date: 20101229
  Transmission Date: 20110831
  Serious: Yes (Other)
  Sender: FDA-Public Use
  Company Number: US-MYLANLABS-2010S1023699

PATIENT
  Age: 66 Year
  Sex: Female
  Weight: 68.04 kg

DRUGS (5)
  1. PROVENTIL [Concomitant]
     Indication: ASTHMA
     Route: 055
  2. FENTANYL-100 [Suspect]
     Indication: PAIN
     Dosage: CHANGES PATCHES Q3D
     Route: 062
     Dates: start: 20101213
  3. MAALOX [Concomitant]
  4. ASMANEX TWISTHALER [Concomitant]
     Indication: ASTHMA
     Route: 055
  5. FENTANYL-100 [Suspect]
     Indication: MUSCLE SPASMS
     Dosage: CHANGES PATCHES Q3D
     Route: 062
     Dates: start: 20101213

REACTIONS (1)
  - RECTAL HAEMORRHAGE [None]
